FAERS Safety Report 25754210 (Version 1)
Quarter: 2025Q3

REPORT INFORMATION
  Report Type: Spontaneous
  Country: CN (occurrence: CN)
  Receive Date: 20250903
  Receipt Date: 20250903
  Transmission Date: 20251021
  Serious: Yes (Other)
  Sender: JIANGSU HENGRUI
  Company Number: CN-JIANGSU HENGRUI PHARMACEUTICALS CO., LTD.-H2025230135

PATIENT
  Age: 69 Year
  Weight: 60 kg

DRUGS (2)
  1. IODIXANOL [Suspect]
     Active Substance: IODIXANOL
     Indication: Computerised tomogram
  2. IODIXANOL [Suspect]
     Active Substance: IODIXANOL

REACTIONS (2)
  - Oxygen saturation decreased [Recovering/Resolving]
  - Drug eruption [Recovering/Resolving]
